FAERS Safety Report 9617600 (Version 1)
Quarter: 2013Q4

REPORT INFORMATION
  Report Type: Spontaneous
  Country: DE (occurrence: DE)
  Receive Date: 20131011
  Receipt Date: 20131011
  Transmission Date: 20140711
  Serious: Yes (Congenital Anomaly)
  Sender: FDA-Public Use
  Company Number: DE-TEVA-436283GER

PATIENT
  Age: 1 Day
  Sex: Male

DRUGS (8)
  1. ENALAPRIL 10 [Suspect]
     Route: 064
  2. VOTUM 20 MG [Suspect]
     Route: 064
  3. CARMEN [Suspect]
     Route: 064
  4. KALETRA WEICHKAPSELN [Suspect]
     Route: 064
  5. TRUVADA [Suspect]
     Route: 064
  6. BELOC-ZOK MITE [Concomitant]
     Route: 064
  7. NIFEDIPIN-WOLFF 40 RETARD [Concomitant]
     Route: 064
  8. METHYLDOPA 250MG [Concomitant]
     Route: 064

REACTIONS (3)
  - Kidney duplex [Not Recovered/Not Resolved]
  - Congenital hearing disorder [Not Recovered/Not Resolved]
  - Supernumerary nipple [Not Recovered/Not Resolved]
